FAERS Safety Report 5096028-1 (Version None)
Quarter: 2006Q3

REPORT INFORMATION
  Report Type: 
  Country: None (occurrence: None)
  Receive Date: 20060905
  Receipt Date: 20060821
  Transmission Date: 20061208
  Serious: Yes (Hospitalization)
  Sender: FDA-Public Use
  Company Number: 2006015812

PATIENT
  Age: 69 Year
  Sex: Female

DRUGS (1)
  1. QUILONUM RETARD [Suspect]
     Dosage: 450MG PER DAY
     Route: 048

REACTIONS (4)
  - DYSARTHRIA [None]
  - RENAL FAILURE [None]
  - SOMNOLENCE [None]
  - THERAPEUTIC AGENT TOXICITY [None]
